FAERS Safety Report 25836011 (Version 1)
Quarter: 2025Q3

REPORT INFORMATION
  Report Type: Spontaneous
  Country: US (occurrence: US)
  Receive Date: 20250923
  Receipt Date: 20250923
  Transmission Date: 20251020
  Serious: Yes (Other)
  Sender: Haleon PLC
  Company Number: US-HALEON-2263991

PATIENT
  Age: 79 Year
  Sex: Female

DRUGS (1)
  1. SENSODYNE REPAIR AND PROTECT EXTRA FRESH [Suspect]
     Active Substance: STANNOUS FLUORIDE
     Indication: Hyperaesthesia teeth

REACTIONS (4)
  - Anaphylactic reaction [Not Recovered/Not Resolved]
  - Dental discomfort [Not Recovered/Not Resolved]
  - Oral mucosal blistering [Not Recovered/Not Resolved]
  - Dermatitis contact [Not Recovered/Not Resolved]
